FAERS Safety Report 15603068 (Version 1)
Quarter: 2018Q4

REPORT INFORMATION
  Report Type: Spontaneous
  Country: FR (occurrence: FR)
  Receive Date: 20181109
  Receipt Date: 20181109
  Transmission Date: 20190205
  Serious: Yes (Hospitalization)
  Sender: FDA-Public Use
  Company Number: FR-PFIZER INC-2018453485

PATIENT
  Age: 67 Year
  Sex: Male
  Weight: 66 kg

DRUGS (5)
  1. VINCRISTINE HOSPIRA [Suspect]
     Active Substance: VINCRISTINE
     Indication: T-CELL LYMPHOMA STAGE IV
     Dosage: 2 MG, 1X/DAY
     Route: 041
     Dates: start: 20181001, end: 20181001
  2. DOXORUBICINE ACCORD [Suspect]
     Active Substance: DOXORUBICIN
     Indication: T-CELL LYMPHOMA STAGE IV
     Dosage: 96 MG, 1X/DAY
     Route: 041
     Dates: start: 20181001, end: 20181001
  3. METHOTREXATE BIODIM [Suspect]
     Active Substance: METHOTREXATE
     Indication: T-CELL LYMPHOMA STAGE IV
     Dosage: 15 MG, 1X/DAY
     Route: 037
     Dates: start: 20181001, end: 20181001
  4. ENDOXAN [CYCLOPHOSPHAMIDE] [Suspect]
     Active Substance: CYCLOPHOSPHAMIDE
     Indication: T-CELL LYMPHOMA STAGE IV
     Dosage: 1450 MG, 1X/DAY
     Route: 041
     Dates: start: 20181001, end: 20181001
  5. ETOPOSIDE TEVA [Suspect]
     Active Substance: ETOPOSIDE
     Indication: T-CELL LYMPHOMA STAGE IV
     Dosage: 190 MG, 1X/DAY
     Route: 041
     Dates: start: 20181001, end: 20181003

REACTIONS (1)
  - Klebsiella sepsis [Not Recovered/Not Resolved]

NARRATIVE: CASE EVENT DATE: 20181010
